FAERS Safety Report 14310430 (Version 2)
Quarter: 2018Q1

REPORT INFORMATION
  Report Type: Spontaneous
  Country: JP (occurrence: JP)
  Receive Date: 20171220
  Receipt Date: 20180122
  Transmission Date: 20180509
  Serious: Yes (Other)
  Sender: FDA-Public Use
  Company Number: JP-EISAI MEDICAL RESEARCH-EC-2017-034307

PATIENT
  Age: 47 Year
  Sex: Female

DRUGS (2)
  1. ARICEPT [Suspect]
     Active Substance: DONEPEZIL HYDROCHLORIDE
     Indication: ROSS SYNDROME
     Route: 048
  2. ARICEPT [Suspect]
     Active Substance: DONEPEZIL HYDROCHLORIDE
     Dosage: DOSE REDUCED (DOSE UNSPECIFIED)
     Route: 048

REACTIONS (2)
  - Hypotonia [Recovering/Resolving]
  - Product use in unapproved indication [Recovering/Resolving]
